FAERS Safety Report 8250662-6 (Version None)
Quarter: 2012Q1

REPORT INFORMATION
  Report Type: 
  Country: None (occurrence: None)
  Receive Date: 20120328
  Receipt Date: 20120319
  Transmission Date: 20120608
  Serious: Yes (Hospitalization)
  Sender: FDA-Public Use
  Company Number: 2012SP015028

PATIENT
  Age: 13 Year
  Sex: Male
  Weight: 52.1637 kg

DRUGS (1)
  1. ASENAPINE [Suspect]
     Indication: BIPOLAR I DISORDER
     Dosage: 10 MG;BID;PO
     Route: 048
     Dates: start: 20120229

REACTIONS (2)
  - AGGRESSION [None]
  - AGITATION [None]
